FAERS Safety Report 9553824 (Version 1)
Quarter: 2013Q3

REPORT INFORMATION
  Report Type: Spontaneous
  Country: US (occurrence: None)
  Receive Date: 20130913
  Receipt Date: 20130913
  Transmission Date: 20140515
  Serious: Yes (Life-Threatening)
  Sender: FDA-Public Use
  Company Number: 1000042613

PATIENT
  Age: 51 Year
  Sex: Female

DRUGS (7)
  1. DALIRESP [Suspect]
     Indication: CHRONIC OBSTRUCTIVE PULMONARY DISEASE
  2. SPIRIVA (TIOTROPIUM BROMIDE) (TIOTROPIUM BROMIDE) [Concomitant]
  3. ADVAIR (FLUTICASONE, SALMETEROL) (FLUTICASONE, SALMETEROL) [Concomitant]
  4. ALBUTEROL (ALBUTEROL) (ALBUTEROL) [Concomitant]
  5. MORPHINE (MORPHINE) (MORPHINE) [Concomitant]
  6. DILTIAZEM (DILTIAZEM HYDROCHLORIDE) (DILTIAZEM HYDROCHLORIDE) [Concomitant]
  7. PREDNISONIE (PREDNISONE) (PREDNISONE) [Concomitant]

REACTIONS (1)
  - Suicidal ideation [None]
